FAERS Safety Report 8397763-X (Version None)
Quarter: 2012Q2

REPORT INFORMATION
  Report Type: 
  Country: None (occurrence: None)
  Receive Date: 20120525
  Receipt Date: 20120515
  Transmission Date: 20120825
  Serious: Yes (Other)
  Sender: FDA-Public Use
  Company Number: 1294416

PATIENT
  Age: 48 Year
  Sex: Female

DRUGS (1)
  1. GEMCITABINE HYDROCHLORIDE [Suspect]
     Indication: OVARIAN CANCER

REACTIONS (6)
  - HYPERTENSION [None]
  - RENAL FAILURE ACUTE [None]
  - NEPHROPATHY [None]
  - CONVULSION [None]
  - HYPOMAGNESAEMIA [None]
  - POSTERIOR REVERSIBLE ENCEPHALOPATHY SYNDROME [None]
